FAERS Safety Report 10862990 (Version 3)
Quarter: 2015Q2

REPORT INFORMATION
  Report Type: Report from Study
  Country: JP (occurrence: JP)
  Receive Date: 20150223
  Receipt Date: 20150402
  Transmission Date: 20150821
  Serious: Yes (Hospitalization)
  Sender: FDA-Public Use
  Company Number: JP-ABBVIE-15K-087-1347811-00

PATIENT
  Age: 16 Year
  Sex: Female
  Weight: 74 kg

DRUGS (6)
  1. METHOTREXATE [Concomitant]
     Active Substance: METHOTREXATE
     Indication: JUVENILE IDIOPATHIC ARTHRITIS
     Route: 048
     Dates: start: 20120502
  2. TEPRENONE [Concomitant]
     Active Substance: TEPRENONE
     Indication: JUVENILE IDIOPATHIC ARTHRITIS
     Route: 048
     Dates: start: 20120502
  3. CELECOXIB. [Concomitant]
     Active Substance: CELECOXIB
     Indication: PRODUCT USED FOR UNKNOWN INDICATION
     Dates: start: 20120502
  4. FAMOTIDINE. [Concomitant]
     Active Substance: FAMOTIDINE
     Indication: PRODUCT USED FOR UNKNOWN INDICATION
     Route: 048
     Dates: start: 20120502
  5. HUMIRA [Suspect]
     Active Substance: ADALIMUMAB
     Indication: JUVENILE IDIOPATHIC ARTHRITIS
     Route: 058
     Dates: start: 20120502
  6. REBAMIPIDE [Concomitant]
     Active Substance: REBAMIPIDE
     Indication: PRODUCT USED FOR UNKNOWN INDICATION

REACTIONS (3)
  - Dizziness [Unknown]
  - Dizziness [Recovered/Resolved]
  - Abasia [Unknown]

NARRATIVE: CASE EVENT DATE: 201502
